FAERS Safety Report 7382671-3 (Version None)
Quarter: 2011Q1

REPORT INFORMATION
  Report Type: 
  Country: None (occurrence: None)
  Receive Date: 20110329
  Receipt Date: 20110315
  Transmission Date: 20110831
  Serious: Yes (Other)
  Sender: FDA-Public Use
  Company Number: US-MYLANLABS-2011S1005680

PATIENT
  Age: 45 Year
  Sex: Male

DRUGS (4)
  1. NELFINAVIR [Concomitant]
     Indication: HIV INFECTION
     Route: 065
     Dates: start: 19990101, end: 20030101
  2. DIDANOSINE [Suspect]
     Indication: HIV INFECTION
     Route: 065
     Dates: start: 19980101, end: 20030101
  3. SAQUINAVIR [Concomitant]
     Indication: HIV INFECTION
     Route: 065
     Dates: start: 19980101, end: 19990101
  4. STAVUDINE [Concomitant]
     Indication: HIV INFECTION
     Route: 065
     Dates: start: 19980101, end: 20030101

REACTIONS (3)
  - PORTAL HYPERTENSION [None]
  - NODULAR REGENERATIVE HYPERPLASIA [None]
  - PHLEBOSCLEROSIS [None]
